FAERS Safety Report 5361723-3 (Version None)
Quarter: 2007Q2

REPORT INFORMATION
  Report Type: 
  Country: None (occurrence: None)
  Receive Date: 20070615
  Receipt Date: 20070615
  Transmission Date: 20071010
  Serious: Yes (Hospitalization, Other)
  Sender: FDA-Public Use
  Company Number: None

PATIENT
  Age: 57 Year
  Sex: Male
  Weight: 119 kg

DRUGS (2)
  1. TEMOZOLOMIDE [Suspect]
     Indication: GLIOBLASTOMA
     Dosage: 160 MG PO QD
     Route: 048
     Dates: start: 20070305, end: 20070517
  2. PTK787/222584 [Suspect]
     Dosage: 250 MG PO QD
     Route: 048
     Dates: start: 20070228, end: 20070517

REACTIONS (2)
  - PULMONARY EMBOLISM [None]
  - THERAPY CESSATION [None]
